FAERS Safety Report 8511651-7 (Version None)
Quarter: 2012Q3

REPORT INFORMATION
  Report Type: 
  Country: None (occurrence: None)
  Receive Date: 20120716
  Receipt Date: 20120711
  Transmission Date: 20120928
  Serious: Yes (Other)
  Sender: FDA-Public Use
  Company Number: IT-PFIZER INC-2012167828

PATIENT

DRUGS (1)
  1. SUTENT [Suspect]
     Indication: RENAL CELL CARCINOMA
     Dosage: 50 MG, 1X/DAY
     Route: 048
     Dates: start: 20080602, end: 20080701

REACTIONS (6)
  - ASTHENIA [None]
  - TOOTH ABSCESS [None]
  - PLAGUE [None]
  - GINGIVITIS [None]
  - PAIN [None]
  - MALAISE [None]
